FAERS Safety Report 18820607 (Version 1)
Quarter: 2021Q1

REPORT INFORMATION
  Report Type: Spontaneous
  Country: IT (occurrence: IT)
  Receive Date: 20210202
  Receipt Date: 20210202
  Transmission Date: 20210419
  Serious: Yes (Other)
  Sender: FDA-Public Use
  Company Number: IT-ACCORD-216276

PATIENT
  Age: 56 Year
  Sex: Female

DRUGS (2)
  1. COLISTIN [Suspect]
     Active Substance: COLISTIN
     Indication: ACINETOBACTER INFECTION
     Dosage: 0.5 MG/ML
  2. TIGECYCLINE. [Suspect]
     Active Substance: TIGECYCLINE
     Indication: ACINETOBACTER INFECTION

REACTIONS (3)
  - Acute kidney injury [Unknown]
  - Drug ineffective [Unknown]
  - Coagulopathy [Unknown]
